FAERS Safety Report 7970055-6 (Version None)
Quarter: 2011Q4

REPORT INFORMATION
  Report Type: 
  Country: None (occurrence: None)
  Receive Date: 20111212
  Receipt Date: 20111206
  Transmission Date: 20120403
  Serious: No
  Sender: FDA-Public Use
  Company Number: US-BAYER-2011-117968

PATIENT
  Age: 84 Year
  Sex: Male
  Weight: 66 kg

DRUGS (4)
  1. ALEVE (CAPLET) [Suspect]
     Indication: BACK PAIN
     Dosage: 1 DF, QD
     Route: 048
     Dates: start: 20111206
  2. RANITIDINE [Concomitant]
  3. COZAAR [Concomitant]
  4. CIALIS [Concomitant]

REACTIONS (1)
  - FAECES DISCOLOURED [None]
